FAERS Safety Report 6704091-4 (Version None)
Quarter: 2010Q2

REPORT INFORMATION
  Report Type: 
  Country: None (occurrence: None)
  Receive Date: 20100430
  Receipt Date: 20100420
  Transmission Date: 20101027
  Serious: Yes (Hospitalization)
  Sender: FDA-Public Use
  Company Number: DE-WATSON-2010-05594

PATIENT
  Age: 32 Year
  Sex: Male

DRUGS (1)
  1. PREDNISOLONE ACETATE (WATSON LABORATORIES) [Suspect]
     Indication: TINEA VERSICOLOUR
     Dosage: 250 MG, SINGLE
     Route: 042

REACTIONS (3)
  - CHEST PAIN [None]
  - PARALYSIS [None]
  - THYROTOXIC PERIODIC PARALYSIS [None]
